FAERS Safety Report 22398116 (Version 1)
Quarter: 2023Q2

REPORT INFORMATION
  Report Type: Spontaneous
  Country: US (occurrence: US)
  Receive Date: 20230602
  Receipt Date: 20230602
  Transmission Date: 20230721
  Serious: Yes (Other)
  Sender: FDA-Public Use
  Company Number: US-SUN PHARMACEUTICAL INDUSTRIES LTD-2023R1-392327

PATIENT
  Age: 60 Year
  Sex: Male

DRUGS (1)
  1. GEMCITABINE [Suspect]
     Active Substance: GEMCITABINE
     Indication: Lung neoplasm malignant
     Dosage: UNK 3 CYCLES
     Route: 065

REACTIONS (1)
  - Neoplasm progression [Unknown]

NARRATIVE: CASE EVENT DATE: 20221101
